FAERS Safety Report 11649519 (Version 2)
Quarter: 2015Q4

REPORT INFORMATION
  Report Type: Spontaneous
  Country: US (occurrence: US)
  Receive Date: 20151021
  Receipt Date: 20151106
  Transmission Date: 20160304
  Serious: Yes (Hospitalization)
  Sender: FDA-Public Use
  Company Number: US-LPDUSPRD-20150805

PATIENT
  Age: 32 Year
  Sex: Male

DRUGS (3)
  1. OLANZAPINE FOR INJECTION (0517-0955-01) [Suspect]
     Active Substance: OLANZAPINE
     Dosage: 10 MG
     Route: 030
  2. HYDROCODONE/ACETAMINOPHEN [Concomitant]
     Active Substance: ACETAMINOPHEN\HYDROCODONE
     Dosage: 12 TABLETS
     Route: 048
  3. NALOXONE [Concomitant]
     Active Substance: NALOXONE
     Dosage: 1 MG
     Route: 042

REACTIONS (8)
  - Oxygen saturation decreased [Recovered/Resolved]
  - Hypoxia [Recovered/Resolved]
  - Spasmodic dysphonia [Recovered/Resolved]
  - Bradycardia [Recovered/Resolved]
  - Chest expansion decreased [Recovered/Resolved]
  - Gaze palsy [Recovered/Resolved]
  - Stridor [Recovered/Resolved]
  - Unresponsive to stimuli [Recovered/Resolved]
